FAERS Safety Report 7487401-2 (Version None)
Quarter: 2011Q2

REPORT INFORMATION
  Report Type: 
  Country: None (occurrence: None)
  Receive Date: 20110518
  Receipt Date: 20110504
  Transmission Date: 20111010
  Serious: Yes (Hospitalization)
  Sender: FDA-Public Use
  Company Number: US-ELI_LILLY_AND_COMPANY-US201008007148

PATIENT
  Sex: Female

DRUGS (19)
  1. PREDNISONE [Concomitant]
     Dosage: UNK, UNKNOWN
     Route: 065
  2. REMERON [Concomitant]
     Dosage: UNK, UNKNOWN
     Route: 065
  3. ZOCOR [Concomitant]
     Dosage: UNK, UNKNOWN
     Route: 065
  4. SYNTHROID [Concomitant]
     Dosage: UNK, UNKNOWN
     Route: 065
  5. TRAZODONE HCL [Concomitant]
     Dosage: UNK, UNKNOWN
     Route: 065
  6. FLAGYL [Concomitant]
     Dosage: UNK, UNKNOWN
     Route: 065
  7. MULTI-VIT [Concomitant]
     Dosage: UNK, UNKNOWN
     Route: 065
  8. LOVAZA [Concomitant]
     Dosage: UNK, UNKNOWN
     Route: 065
  9. MORPHINE [Concomitant]
     Dosage: UNK, UNKNOWN
     Route: 065
  10. FORTEO [Suspect]
     Indication: OSTEOPOROSIS
     Dosage: 20 MG, DAILY (1/D)
     Route: 058
     Dates: start: 20100301
  11. CYMBALTA [Concomitant]
     Dosage: UNK, UNKNOWN
     Route: 065
  12. MOBIC [Concomitant]
     Dosage: UNK, UNKNOWN
     Route: 065
  13. VIT D [Concomitant]
     Dosage: UNK, UNKNOWN
     Route: 065
  14. PROVENTIL                          /00139502/ [Concomitant]
     Dosage: UNK, UNKNOWN
     Route: 065
  15. VITAMIN B [Concomitant]
     Dosage: UNK, UNKNOWN
     Route: 065
  16. ADVAIR DISKUS 100/50 [Concomitant]
     Dosage: UNK, UNKNOWN
     Route: 065
  17. PERCOCET [Concomitant]
     Dosage: UNK, UNKNOWN
     Route: 065
  18. NEURONTIN [Concomitant]
     Dosage: UNK, UNKNOWN
     Route: 065
  19. DITROPAN [Concomitant]
     Dosage: UNK, UNKNOWN
     Route: 065

REACTIONS (6)
  - WOUND DRAINAGE [None]
  - PAIN [None]
  - JOINT SWELLING [None]
  - ARTHROPATHY [None]
  - WOUND DEHISCENCE [None]
  - POST PROCEDURAL COMPLICATION [None]
